FAERS Safety Report 17000421 (Version 1)
Quarter: 2019Q4

REPORT INFORMATION
  Report Type: Spontaneous
  Country: US (occurrence: US)
  Receive Date: 20191106
  Receipt Date: 20191106
  Transmission Date: 20200122
  Serious: No
  Sender: FDA-Public Use
  Company Number: US-GLAXOSMITHKLINE-US2019196249

PATIENT
  Age: 64 Year
  Sex: Female

DRUGS (1)
  1. ABREVA [Suspect]
     Active Substance: DOCOSANOL
     Indication: ORAL HERPES
     Dosage: 1 APPLICATION, FIVE TIMES DAILY
     Route: 061
     Dates: start: 20191017

REACTIONS (3)
  - Incorrect product administration duration [Unknown]
  - Off label use [Unknown]
  - Therapeutic product effect delayed [Unknown]
